FAERS Safety Report 7141156-X (Version None)
Quarter: 2010Q4

REPORT INFORMATION
  Report Type: 
  Country: None (occurrence: None)
  Receive Date: 20101202
  Receipt Date: 20101202
  Transmission Date: 20110411
  Serious: Yes (Life-Threatening, Hospitalization, Disabling, Other)
  Sender: FDA-Public Use
  Company Number: None

PATIENT
  Age: 60 Year
  Sex: Female
  Weight: 64.8644 kg

DRUGS (1)
  1. TERBINAFINE HCL [Suspect]
     Indication: RASH
     Dosage: 1 TAB - 30 DAYS
     Dates: start: 20101028, end: 20101106

REACTIONS (1)
  - DRUG HYPERSENSITIVITY [None]
